FAERS Safety Report 6643159-8 (Version None)
Quarter: 2010Q1

REPORT INFORMATION
  Report Type: 
  Country: None (occurrence: None)
  Receive Date: 20100319
  Receipt Date: 20080915
  Transmission Date: 20100710
  Serious: Yes (Hospitalization)
  Sender: FDA-Public Use
  Company Number: US-PURDUE-USA-2008-0034934

PATIENT
  Sex: Male

DRUGS (1)
  1. MS CONTIN [Suspect]
     Indication: PAIN
     Dosage: 75 MG, Q8H

REACTIONS (5)
  - FLUSHING [None]
  - HOSPITALISATION [None]
  - LACRIMATION INCREASED [None]
  - NASAL CONGESTION [None]
  - PYREXIA [None]
